FAERS Safety Report 25245228 (Version 1)
Quarter: 2025Q2

REPORT INFORMATION
  Report Type: Report from Study
  Country: US (occurrence: US)
  Receive Date: 20250428
  Receipt Date: 20250428
  Transmission Date: 20250717
  Serious: Yes (Death)
  Sender: MYLAN
  Company Number: US-MYLANLABS-2025M1034845

PATIENT
  Age: 81 Year
  Sex: Female

DRUGS (3)
  1. MELPHALAN HYDROCHLORIDE [Suspect]
     Active Substance: MELPHALAN HYDROCHLORIDE
     Indication: Pituitary tumour
  2. CARBOPLATIN [Suspect]
     Active Substance: CARBOPLATIN
     Indication: Pituitary tumour
  3. TOPOTECAN [Suspect]
     Active Substance: TOPOTECAN HYDROCHLORIDE
     Indication: Pituitary tumour

REACTIONS (3)
  - Disease progression [Fatal]
  - Drug ineffective for unapproved indication [Fatal]
  - Off label use [Unknown]
